FAERS Safety Report 5705649-1 (Version None)
Quarter: 2008Q2

REPORT INFORMATION
  Report Type: 
  Country: None (occurrence: None)
  Receive Date: 20080415
  Receipt Date: 20080408
  Transmission Date: 20081010
  Serious: Yes (Other)
  Sender: FDA-Public Use
  Company Number: GR-ASTRAZENECA-2008SE01831

PATIENT
  Age: 2861 Day
  Sex: Female
  Weight: 25 kg

DRUGS (4)
  1. SYMBICORT [Suspect]
     Indication: ASTHMA
     Dosage: 80/4.5 MICROGRAM 2 INHALATIONS BID
     Route: 055
     Dates: start: 20080310, end: 20080311
  2. SYMBICORT [Suspect]
     Dosage: 80/4.5 MICROGRAM 2 INHALATIONS BID
     Route: 055
     Dates: start: 20080313, end: 20080313
  3. DRACANYL TURBUHALER [Concomitant]
     Dosage: 0.5 MG TWO INHALATIONS TID
     Route: 055
     Dates: start: 20080310, end: 20080310
  4. DRACANYL TURBUHALER [Concomitant]
     Dosage: 0.5 MG TWO INHALATIONS QID
     Route: 055
     Dates: start: 20080312, end: 20080319

REACTIONS (4)
  - DISCOMFORT [None]
  - HEADACHE [None]
  - NAUSEA [None]
  - TREMOR [None]
